FAERS Safety Report 12245491 (Version 1)
Quarter: 2016Q2

REPORT INFORMATION
  Report Type: Spontaneous
  Country: None (occurrence: None)
  Receive Date: 20160406
  Receipt Date: 20160406
  Transmission Date: 20160815
  Serious: No
  Sender: FDA-Public Use
  Company Number: None

PATIENT

DRUGS (2)
  1. TOUJEO [Suspect]
     Active Substance: INSULIN GLARGINE
  2. METFORMIN [Suspect]
     Active Substance: METFORMIN HYDROCHLORIDE

REACTIONS (7)
  - Renal disorder [None]
  - Drug ineffective [None]
  - Peripheral swelling [None]
  - Visual acuity reduced [None]
  - Pain [None]
  - Incorrect dose administered [None]
  - Unevaluable event [None]
